FAERS Safety Report 4617068-X (Version None)
Quarter: 2005Q1

REPORT INFORMATION
  Report Type: 
  Country: None (occurrence: None)
  Receive Date: 20050323
  Receipt Date: 20050311
  Transmission Date: 20050727
  Serious: Yes (Hospitalization)
  Sender: FDA-Public Use
  Company Number: DE-JNJFOC-20050303352

PATIENT
  Sex: Female
  Weight: 63 kg

DRUGS (15)
  1. DURAGESIC-100 [Suspect]
     Indication: DRUG USE FOR UNKNOWN INDICATION
     Route: 062
  2. SEMPERA [Suspect]
     Indication: DRUG USE FOR UNKNOWN INDICATION
     Route: 049
  3. PARACETAMOL [Concomitant]
     Route: 065
  4. R115777 [Concomitant]
     Route: 065
  5. AMPHOMORONAL [Concomitant]
     Route: 065
  6. PANTOPRAZOLE SODIUM [Concomitant]
     Route: 049
  7. LEVOFLOXACIN [Concomitant]
     Route: 049
  8. BELOC ZOK MITE [Concomitant]
     Route: 049
  9. AMITRIPTYLINE HCL [Concomitant]
     Route: 049
  10. DYTIDE H [Concomitant]
     Route: 049
  11. DYTIDE H [Concomitant]
     Route: 049
  12. ALLOPURINOL [Concomitant]
     Route: 049
  13. VOMEX [Concomitant]
     Route: 054
  14. VOMEX [Concomitant]
     Dosage: AS NEEDED UPTO TWICE DAILY.
     Route: 054
  15. DOXYCYCLIN [Concomitant]
     Route: 049

REACTIONS (4)
  - BLOOD CREATININE INCREASED [None]
  - BLOOD LACTATE DEHYDROGENASE INCREASED [None]
  - C-REACTIVE PROTEIN INCREASED [None]
  - INFECTION [None]
